FAERS Safety Report 9498442 (Version 2)
Quarter: 2013Q3

REPORT INFORMATION
  Report Type: Report from Study
  Country: SE (occurrence: SE)
  Receive Date: 20130904
  Receipt Date: 20130904
  Transmission Date: 20140515
  Serious: Yes (Hospitalization)
  Sender: FDA-Public Use
  Company Number: SE-GLAXOSMITHKLINE-B0918706A

PATIENT
  Age: 43 Year
  Sex: Female

DRUGS (9)
  1. LAPATINIB [Suspect]
     Indication: BREAST CANCER METASTATIC
     Route: 048
     Dates: start: 20100331
  2. CAPECITABINE [Suspect]
     Indication: BREAST CANCER METASTATIC
     Route: 048
     Dates: start: 20100331
  3. TRASTUZUMAB EMTANSINE [Suspect]
     Indication: BREAST CANCER METASTATIC
     Dosage: 410MG PER DAY
     Route: 042
     Dates: start: 20130507
  4. PARACETAMOL [Concomitant]
     Indication: PAIN
     Dosage: 500MG PER DAY
     Dates: start: 20091216
  5. OXYCODONE [Concomitant]
     Indication: PAIN
     Dates: start: 20100901
  6. ACETYLSALICYLIC ACID [Concomitant]
     Indication: THROMBOSIS
     Dosage: 160MG PER DAY
     Dates: start: 20110718, end: 20130810
  7. CALCIUM CARBONATE + CHOLECALCIFEROL [Concomitant]
     Indication: METASTASES TO BONE
     Dates: start: 20130115
  8. DICLOFENAC [Concomitant]
     Indication: PAIN
     Dosage: 50MG PER DAY
     Dates: start: 20130618, end: 20130810
  9. OMEPRAZOLE [Concomitant]
     Indication: PROPHYLAXIS
     Dosage: 20MG PER DAY
     Dates: start: 20130618, end: 20130810

REACTIONS (1)
  - Ulcer [Recovered/Resolved]
